FAERS Safety Report 8366646-3 (Version None)
Quarter: 2012Q2

REPORT INFORMATION
  Report Type: 
  Country: None (occurrence: None)
  Receive Date: 20120517
  Receipt Date: 20120508
  Transmission Date: 20120825
  Serious: Yes (Other)
  Sender: FDA-Public Use
  Company Number: DE-NOVOPROD-351165

PATIENT
  Age: 14 Year
  Sex: Male

DRUGS (2)
  1. HUMAN INSULINK [Concomitant]
     Indication: TYPE 1 DIABETES MELLITUS
  2. NOVORAPID [Suspect]
     Indication: TYPE 1 DIABETES MELLITUS
     Route: 065

REACTIONS (1)
  - FOCAL NODULAR HYPERPLASIA [None]
